FAERS Safety Report 18795154 (Version 2)
Quarter: 2021Q1

REPORT INFORMATION
  Report Type: Spontaneous
  Country: US (occurrence: US)
  Receive Date: 20210127
  Receipt Date: 20210225
  Transmission Date: 20210419
  Serious: No
  Sender: FDA-Public Use
  Company Number: US-PFIZER INC-2021050537

PATIENT

DRUGS (1)
  1. PREMARIN [Suspect]
     Active Substance: ESTROGENS, CONJUGATED
     Dosage: UNK

REACTIONS (5)
  - Illness [Unknown]
  - Feeling abnormal [Unknown]
  - Thinking abnormal [Unknown]
  - Post-traumatic stress disorder [Unknown]
  - Condition aggravated [Unknown]
